FAERS Safety Report 14230803 (Version 1)
Quarter: 2017Q4

REPORT INFORMATION
  Report Type: Spontaneous
  Country: US (occurrence: US)
  Receive Date: 20171128
  Receipt Date: 20171128
  Transmission Date: 20180321
  Serious: No
  Sender: FDA-Public Use
  Company Number: US-JNJFOC-20171014605

PATIENT
  Age: 7 Year
  Sex: Female
  Weight: 28.12 kg

DRUGS (2)
  1. CHILDRENS ZYRTEC ALLERGY [Suspect]
     Active Substance: CETIRIZINE HYDROCHLORIDE
     Indication: ALLERGY TO ANIMAL
     Dosage: TAKEN 3 TIMES
     Route: 048
  2. CHILDRENS ZYRTEC ALLERGY [Suspect]
     Active Substance: CETIRIZINE HYDROCHLORIDE
     Indication: SEASONAL ALLERGY
     Dosage: TAKEN 3 TIMES
     Route: 048

REACTIONS (3)
  - Product use in unapproved indication [Unknown]
  - Poor quality drug administered [Unknown]
  - Product physical issue [Unknown]
